FAERS Safety Report 24003232 (Version 4)
Quarter: 2025Q3

REPORT INFORMATION
  Report Type: Spontaneous
  Country: US (occurrence: US)
  Receive Date: 20240624
  Receipt Date: 20250706
  Transmission Date: 20251021
  Serious: No
  Sender: SANOFI AVENTIS
  Company Number: US-SANOFI-02096482

PATIENT
  Age: 60 Year
  Sex: Male
  Weight: 85.261 kg

DRUGS (9)
  1. DUPIXENT [Suspect]
     Active Substance: DUPILUMAB
     Indication: Seborrhoeic keratosis
     Dosage: 300 MG, QOW
     Route: 058
  2. DUPIXENT [Suspect]
     Active Substance: DUPILUMAB
     Indication: Transient acantholytic dermatosis
  3. ATORVASTATIN CALCIUM [Concomitant]
     Active Substance: ATORVASTATIN CALCIUM
  4. VITAMIN D3 [Concomitant]
     Active Substance: CHOLECALCIFEROL
  5. STOOL SOFTENER (DOCUSATE) [Concomitant]
     Active Substance: DOCUSATE
  6. OZEMPIC [Concomitant]
     Active Substance: SEMAGLUTIDE
  7. VITAMINS NOS [Concomitant]
     Active Substance: VITAMINS
  8. PROBIOTIC 10 [BIFIDOBACTERIUM BIFIDUM;BIFIDOBACTERIUM LACTIS;LACTIPLAN [Concomitant]
  9. DOXYCYCLINE HYCLATE [Concomitant]
     Active Substance: DOXYCYCLINE HYCLATE

REACTIONS (5)
  - Weight decreased [Unknown]
  - Injection site pain [Unknown]
  - Product use in unapproved indication [Unknown]
  - Accidental exposure to product [Unknown]
  - Exposure via skin contact [Unknown]
